FAERS Safety Report 15610965 (Version 1)
Quarter: 2018Q4

REPORT INFORMATION
  Report Type: Spontaneous
  Country: US (occurrence: US)
  Receive Date: 20181113
  Receipt Date: 20181113
  Transmission Date: 20190205
  Serious: No
  Sender: FDA-Public Use
  Company Number: US-ROCHE-2008298

PATIENT
  Sex: Female

DRUGS (4)
  1. LUPRON [Concomitant]
     Active Substance: LEUPROLIDE ACETATE
  2. FASLODEX [Concomitant]
     Active Substance: FULVESTRANT
  3. HERCEPTIN [Suspect]
     Active Substance: TRASTUZUMAB
     Indication: HER-2 POSITIVE BREAST CANCER
     Route: 065
  4. FEMARA [Concomitant]
     Active Substance: LETROZOLE

REACTIONS (2)
  - Urine odour abnormal [Recovered/Resolved]
  - Constipation [Unknown]
